FAERS Safety Report 20850350 (Version 2)
Quarter: 2022Q2

REPORT INFORMATION
  Report Type: Spontaneous
  Country: US (occurrence: None)
  Receive Date: 20220519
  Receipt Date: 20220627
  Transmission Date: 20220721
  Serious: No
  Sender: FDA-Public Use
  Company Number: 2022A156968

PATIENT
  Sex: Female

DRUGS (2)
  1. SYMBICORT [Suspect]
     Active Substance: BUDESONIDE\FORMOTEROL FUMARATE DIHYDRATE
     Indication: Asthma
     Dosage: 160/4.5 UNKNOWN FREQUENCY UNKNOWN
     Route: 055
     Dates: start: 2012
  2. CLARITIN-D NOS [Concomitant]
     Active Substance: LORATADINE\PSEUDOEPHEDRINE SULFATE
     Route: 065

REACTIONS (8)
  - Dyspnoea [Unknown]
  - Chronic obstructive pulmonary disease [Unknown]
  - Asthma [Unknown]
  - Pneumonia [Unknown]
  - Visual impairment [Unknown]
  - Product packaging quantity issue [Unknown]
  - Device delivery system issue [Unknown]
  - Therapeutic response shortened [Unknown]
